FAERS Safety Report 10935392 (Version 1)
Quarter: 2015Q1

REPORT INFORMATION
  Report Type: Spontaneous
  Country: US (occurrence: US)
  Receive Date: 20150320
  Receipt Date: 20150320
  Transmission Date: 20150721
  Serious: Yes (Other)
  Sender: FDA-Public Use
  Company Number: US-TEVA-545904USA

PATIENT
  Age: 49 Year
  Sex: Female

DRUGS (1)
  1. CAPECITABINE. [Suspect]
     Active Substance: CAPECITABINE
     Indication: DRUG THERAPY
     Dosage: 3 TABLETS IN MORNING, 3 TABLETS IN EVENING, 14 DAYS ON, 14 DAYS OFF
     Route: 048

REACTIONS (2)
  - Headache [Unknown]
  - Hemiparesis [Unknown]
